FAERS Safety Report 19219118 (Version 1)
Quarter: 2021Q2

REPORT INFORMATION
  Report Type: Spontaneous
  Country: US (occurrence: US)
  Receive Date: 20210506
  Receipt Date: 20210506
  Transmission Date: 20210717
  Serious: No
  Sender: FDA-Public Use
  Company Number: US-ROCHE-2602245

PATIENT
  Age: 78 Year
  Sex: Female

DRUGS (1)
  1. ESBRIET [Suspect]
     Active Substance: PIRFENIDONE
     Indication: PULMONARY FIBROSIS
     Route: 048
     Dates: start: 20200424, end: 20200514

REACTIONS (10)
  - Nausea [Unknown]
  - Abdominal pain upper [Unknown]
  - Investigation abnormal [Unknown]
  - Malaise [Unknown]
  - Stomatitis [Unknown]
  - Muscle spasms [Unknown]
  - Diarrhoea [Unknown]
  - Dyspnoea [Unknown]
  - Tremor [Unknown]
  - Decreased appetite [Unknown]

NARRATIVE: CASE EVENT DATE: 20200424
